FAERS Safety Report 5692745-0 (Version None)
Quarter: 2008Q2

REPORT INFORMATION
  Report Type: 
  Country: None (occurrence: None)
  Receive Date: 20080401
  Receipt Date: 20080326
  Transmission Date: 20081010
  Serious: Yes (Death, Other)
  Sender: FDA-Public Use
  Company Number: 163-21880-08031739

PATIENT
  Sex: Female

DRUGS (8)
  1. REVLIMID [Suspect]
     Indication: MULTIPLE MYELOMA
     Dosage: 25 MG, DAILY, ORAL; 10 DAYS ON 11 DAYS OFF, ORAL
     Route: 048
     Dates: start: 20060501, end: 20070801
  2. DECADRON [Concomitant]
  3. BIAXIN (CLARITHYROMYCIN) [Concomitant]
  4. ZOFRAN [Concomitant]
  5. ARNESP (DARBEPOETIN ALFA) [Concomitant]
  6. POTASSIUM CHLORIDE [Concomitant]
  7. DURAGESCI (FENTANYL) [Concomitant]
  8. DILAUDID [Concomitant]

REACTIONS (3)
  - NEUTROPENIA [None]
  - NO THERAPEUTIC RESPONSE [None]
  - THROMBOCYTOPENIA [None]
